FAERS Safety Report 15682184 (Version 4)
Quarter: 2019Q2

REPORT INFORMATION
  Report Type: Spontaneous
  Country: US (occurrence: US)
  Receive Date: 20181203
  Receipt Date: 20190520
  Transmission Date: 20190711
  Serious: No
  Sender: FDA-Public Use
  Company Number: US-PFIZER INC-2018482675

PATIENT
  Age: 49 Year
  Sex: Female

DRUGS (22)
  1. MARINOL [Concomitant]
     Active Substance: DRONABINOL
     Dosage: UNK
     Dates: start: 2011, end: 2014
  2. DOCETAXEL. [Suspect]
     Active Substance: DOCETAXEL
     Indication: BREAST CANCER FEMALE
     Dosage: 140 MG, CYCLIC (3 CYCLES, EVERY THREE WEEKS)
     Dates: start: 20140227, end: 20140227
  3. DOCETAXEL. [Suspect]
     Active Substance: DOCETAXEL
     Dosage: 130 MG, CYCLIC (3 CYCLES, EVERY THREE WEEKS)
     Dates: start: 20140320, end: 20140320
  4. DOCETAXEL. [Suspect]
     Active Substance: DOCETAXEL
     Dosage: 130 MG, CYCLIC (3 CYCLES, EVERY THREE WEEKS)
     Dates: start: 20140417, end: 20140417
  5. TAXOTERE [Suspect]
     Active Substance: DOCETAXEL
     Dosage: 130 MG, CYCLIC (3 CYCLES, EVERY THREE WEEKS)
     Dates: start: 20140320, end: 20140320
  6. ATIVAN [Concomitant]
     Active Substance: LORAZEPAM
     Dosage: UNK
     Dates: start: 2011
  7. RASUVO [Concomitant]
     Active Substance: METHOTREXATE SODIUM
     Dosage: UNK
  8. TAXOTERE [Suspect]
     Active Substance: DOCETAXEL
     Indication: BREAST CANCER FEMALE
     Dosage: 140 MG, CYCLIC (3 CYCLES, EVERY THREE WEEKS)
     Dates: start: 20140227, end: 20140227
  9. TAXOTERE [Suspect]
     Active Substance: DOCETAXEL
     Dosage: 130 MG, CYCLIC (3 CYCLES, EVERY THREE WEEKS)
     Dates: start: 20140417, end: 20140417
  10. ULTRAM [Concomitant]
     Active Substance: TRAMADOL HYDROCHLORIDE
     Dosage: UNK
     Dates: start: 2011, end: 2015
  11. ZOFRAN [Concomitant]
     Active Substance: ONDANSETRON HYDROCHLORIDE
     Dosage: UNK
     Dates: start: 2011, end: 2014
  12. CYTOXAN [Concomitant]
     Active Substance: CYCLOPHOSPHAMIDE
     Dosage: UNK
  13. NEOSAR [Concomitant]
     Active Substance: CYCLOPHOSPHAMIDE
     Dosage: UNK
  14. EMLA [Concomitant]
     Active Substance: LIDOCAINE\PRILOCAINE
     Dosage: UNK
     Dates: start: 2011, end: 2014
  15. EFUDEX [Concomitant]
     Active Substance: FLUOROURACIL
     Dosage: UNK
  16. TREXALL [Concomitant]
     Active Substance: METHOTREXATE SODIUM
     Dosage: UNK
  17. CYCLOPHOSPHAMIDE. [Concomitant]
     Active Substance: CYCLOPHOSPHAMIDE
     Dosage: UNK
  18. SYNTHROID [Concomitant]
     Active Substance: LEVOTHYROXINE SODIUM
     Indication: THYROID DISORDER
     Dosage: UNK
     Dates: start: 2012
  19. DECADRON [Concomitant]
     Active Substance: DEXAMETHASONE
     Dosage: UNK
     Dates: start: 2011, end: 2014
  20. PROLIA [Concomitant]
     Active Substance: DENOSUMAB
     Dosage: UNK
  21. VITAMIN B12 [Concomitant]
     Active Substance: CYANOCOBALAMIN
     Dosage: UNK
  22. LOVAZA [Concomitant]
     Active Substance: OMEGA-3-ACID ETHYL ESTERS
     Dosage: UNK
     Dates: start: 2007

REACTIONS (4)
  - Hair disorder [Not Recovered/Not Resolved]
  - Hair texture abnormal [Not Recovered/Not Resolved]
  - Alopecia [Not Recovered/Not Resolved]
  - Hair colour changes [Not Recovered/Not Resolved]

NARRATIVE: CASE EVENT DATE: 201404
